FAERS Safety Report 16996526 (Version 6)
Quarter: 2021Q1

REPORT INFORMATION
  Report Type: Other
  Country: US (occurrence: US)
  Receive Date: 20191106
  Receipt Date: 20210331
  Transmission Date: 20210419
  Serious: Yes (Death, Hospitalization, Other)
  Sender: FDA-Public Use
  Company Number: US-ROCHE-2456177

PATIENT
  Age: 78 Year
  Sex: Male

DRUGS (10)
  1. MODAFINIL. [Concomitant]
     Active Substance: MODAFINIL
  2. PANTOPRAZOLE [Concomitant]
     Active Substance: PANTOPRAZOLE
  3. LISINOPRIL. [Concomitant]
     Active Substance: LISINOPRIL
  4. BIOTIN [Concomitant]
     Active Substance: BIOTIN
  5. OCREVUS [Suspect]
     Active Substance: OCRELIZUMAB
     Indication: SECONDARY PROGRESSIVE MULTIPLE SCLEROSIS
     Dosage: MOST RECENT DOSE ON FEB?2019
     Route: 042
     Dates: start: 201707
  6. SENNA [Concomitant]
     Active Substance: SENNA LEAF\SENNOSIDES\SENNOSIDES A AND B
  7. FLOMAX [Concomitant]
     Active Substance: TAMSULOSIN HYDROCHLORIDE
  8. KEYTRUDA [Concomitant]
     Active Substance: PEMBROLIZUMAB
  9. HYDROCHLORTHIAZID [Concomitant]
     Active Substance: HYDROCHLOROTHIAZIDE
  10. FLONASE [Concomitant]
     Active Substance: FLUTICASONE PROPIONATE

REACTIONS (4)
  - Progressive multifocal leukoencephalopathy [Fatal]
  - Multiple sclerosis [Unknown]
  - Facial paralysis [Unknown]
  - Aphasia [Unknown]

NARRATIVE: CASE EVENT DATE: 20190810
